FAERS Safety Report 22154285 (Version 6)
Quarter: 2023Q2

REPORT INFORMATION
  Report Type: Report from Study
  Country: GR (occurrence: GR)
  Receive Date: 20230330
  Receipt Date: 20230523
  Transmission Date: 20230722
  Serious: Yes (Death, Life-Threatening, Hospitalization, Other)
  Sender: FDA-Public Use
  Company Number: GR-CELLTRION INC.-2023GR004109

PATIENT

DRUGS (3)
  1. RITUXIMAB [Suspect]
     Active Substance: RITUXIMAB
     Indication: Follicular lymphoma
     Dosage: WEEKLY DURING CYCLE 1, THEN EVERY 4 WEEK CYCLE 2 TO 5
     Route: 042
     Dates: start: 20230111, end: 20230118
  2. RITUXIMAB [Suspect]
     Active Substance: RITUXIMAB
     Dosage: WEEKLY DURING CYCLE 1, THEN EVERY 4 WEEK CYCLE 2 TO 5
     Route: 042
     Dates: start: 20230125, end: 20230217
  3. LENALIDOMIDE [Suspect]
     Active Substance: LENALIDOMIDE
     Indication: Follicular lymphoma
     Dosage: 1-21 DURING CYCLES 1-12, EVERY 1 DAYS
     Route: 048
     Dates: start: 20230111, end: 20230126

REACTIONS (10)
  - Septic shock [Fatal]
  - Fungal sepsis [Fatal]
  - Acinetobacter sepsis [Fatal]
  - Thrombocytopenia [Not Recovered/Not Resolved]
  - Sepsis [Unknown]
  - Bronchopulmonary aspergillosis [Recovered/Resolved with Sequelae]
  - Enterococcus test positive [Recovered/Resolved with Sequelae]
  - Neutropenia [Recovered/Resolved]
  - Pneumonia [Recovered/Resolved with Sequelae]
  - Anaemia [Not Recovered/Not Resolved]

NARRATIVE: CASE EVENT DATE: 20230116
